FAERS Safety Report 5084606-5 (Version None)
Quarter: 2006Q3

REPORT INFORMATION
  Report Type: 
  Country: None (occurrence: None)
  Receive Date: 20060821
  Receipt Date: 20060809
  Transmission Date: 20061208
  Serious: Yes (Death, Other)
  Sender: FDA-Public Use
  Company Number: PHBS2006CZ12004

PATIENT
  Age: 59 Year
  Sex: Male

DRUGS (3)
  1. MYCOPHENOLATE MOFETIL [Suspect]
     Indication: HEART TRANSPLANT
  2. STEROIDS NOS [Suspect]
     Indication: HEART TRANSPLANT
  3. CYCLOSPORINE [Suspect]
     Indication: HEART TRANSPLANT
     Route: 065

REACTIONS (6)
  - LYMPHOPROLIFERATIVE DISORDER [None]
  - MULTI-ORGAN FAILURE [None]
  - NEUROLOGICAL SYMPTOM [None]
  - RENAL FAILURE [None]
  - SEPSIS [None]
  - SURGERY [None]
